FAERS Safety Report 12836763 (Version 5)
Quarter: 2018Q1

REPORT INFORMATION
  Report Type: Report from Study
  Country: US (occurrence: US)
  Receive Date: 20161011
  Receipt Date: 20180102
  Transmission Date: 20180508
  Serious: Yes (Other)
  Sender: FDA-Public Use
  Company Number: US-BIOGEN-2016BI00302155

PATIENT
  Age: 57 Year
  Sex: Female

DRUGS (2)
  1. TYSABRI [Suspect]
     Active Substance: NATALIZUMAB
     Indication: MULTIPLE SCLEROSIS
     Route: 065
     Dates: start: 20160111, end: 20160829
  2. TYSABRI [Suspect]
     Active Substance: NATALIZUMAB
     Route: 065
     Dates: end: 20161227

REACTIONS (1)
  - Breast cancer [Not Recovered/Not Resolved]

NARRATIVE: CASE EVENT DATE: 201609
